FAERS Safety Report 21070905 (Version 2)
Quarter: 2023Q1

REPORT INFORMATION
  Report Type: Spontaneous
  Country: CN (occurrence: CN)
  Receive Date: 20220712
  Receipt Date: 20230326
  Transmission Date: 20230418
  Serious: Yes (Hospitalization, Other)
  Sender: FDA-Public Use
  Company Number: CN-NOVARTISPH-NVSC2022CN157212

PATIENT
  Age: 55 Year
  Sex: Female
  Weight: 67 kg

DRUGS (2)
  1. CARBAMAZEPINE [Suspect]
     Active Substance: CARBAMAZEPINE
     Indication: Headache
     Dosage: FROM 20 APR AND DISCONTINUED THE DRUG ON 4 MAY
     Route: 065
  2. CARBAMAZEPINE [Suspect]
     Active Substance: CARBAMAZEPINE
     Indication: Dizziness
     Dosage: 1 DOSAGE FORM, QD
     Route: 048
     Dates: start: 20200504, end: 20220509

REACTIONS (3)
  - Hypersensitivity [Recovering/Resolving]
  - Erythema multiforme [Unknown]
  - Herpangina [Unknown]

NARRATIVE: CASE EVENT DATE: 20220509
